FAERS Safety Report 8290899-3 (Version None)
Quarter: 2012Q2

REPORT INFORMATION
  Report Type: 
  Country: None (occurrence: None)
  Receive Date: 20120417
  Receipt Date: 20110428
  Transmission Date: 20120825
  Serious: No
  Sender: FDA-Public Use
  Company Number: US-ASTRAZENECA-2010SE10420

PATIENT
  Age: 67 Year
  Sex: Female
  Weight: 67.6 kg

DRUGS (6)
  1. NEXIUM [Suspect]
     Route: 048
     Dates: start: 20100101, end: 20100201
  2. FIBROMAX [Concomitant]
  3. NEXIUM [Suspect]
     Indication: GASTROOESOPHAGEAL REFLUX DISEASE
     Route: 048
  4. NEXIUM [Suspect]
     Route: 048
  5. NEXIUM [Suspect]
     Route: 048
     Dates: start: 20100314
  6. FOSAMAX [Concomitant]

REACTIONS (10)
  - GASTROOESOPHAGEAL REFLUX DISEASE [None]
  - ABDOMINAL PAIN UPPER [None]
  - COUGH [None]
  - DRUG DOSE OMISSION [None]
  - ABDOMINAL DISTENSION [None]
  - INCREASED UPPER AIRWAY SECRETION [None]
  - TINNITUS [None]
  - FLATULENCE [None]
  - DRY MOUTH [None]
  - ERUCTATION [None]
